FAERS Safety Report 23227469 (Version 3)
Quarter: 2024Q1

REPORT INFORMATION
  Report Type: Spontaneous
  Country: IN (occurrence: IN)
  Receive Date: 20231124
  Receipt Date: 20240314
  Transmission Date: 20240410
  Serious: Yes (Death, Other)
  Sender: FDA-Public Use
  Company Number: IN-PFIZER INC-PV202300050442

PATIENT
  Age: 29 Year
  Sex: Female

DRUGS (6)
  1. PALBOCICLIB [Suspect]
     Active Substance: PALBOCICLIB
     Indication: Breast cancer
     Dosage: UNK
     Route: 048
  2. PALBOCICLIB [Suspect]
     Active Substance: PALBOCICLIB
     Dosage: 125 MG, CYCLIC 1-0-0 21/28 DAYS
     Route: 048
     Dates: start: 20230110, end: 20230415
  3. PALBOCICLIB [Suspect]
     Active Substance: PALBOCICLIB
     Dosage: 100 MG, 1X/DAY
     Route: 048
     Dates: start: 20230420
  4. LETROZOLE [Concomitant]
     Active Substance: LETROZOLE
     Dosage: 2.5 MG, 1X/DAY
  5. ZOLEDRONIC ACID [Concomitant]
     Active Substance: ZOLEDRONIC ACID
  6. LEUPROLIDE ACETATE [Concomitant]
     Active Substance: ISOPROPYL ALCOHOL\LEUPROLIDE ACETATE
     Dosage: UNK
     Dates: start: 20230711

REACTIONS (11)
  - Death [Fatal]
  - Febrile neutropenia [Unknown]
  - Salpingo-oophorectomy bilateral [Unknown]
  - White blood cell count decreased [Unknown]
  - Back pain [Unknown]
  - Full blood count abnormal [Unknown]
  - Respiratory rate increased [Unknown]
  - Weight increased [Unknown]
  - Body mass index increased [Unknown]
  - Neoplasm progression [Unknown]
  - Heart rate increased [Unknown]

NARRATIVE: CASE EVENT DATE: 20231116
